FAERS Safety Report 24669507 (Version 1)
Quarter: 2024Q4

REPORT INFORMATION
  Report Type: Spontaneous
  Country: US (occurrence: None)
  Receive Date: 20241127
  Receipt Date: 20241127
  Transmission Date: 20250115
  Serious: Yes (Hospitalization)
  Sender: Public
  Company Number: None

PATIENT
  Sex: Male

DRUGS (11)
  1. GAMMAGARD LIQUID [Suspect]
     Active Substance: HUMAN IMMUNOGLOBULIN G
     Indication: Encephalomyelitis
     Dosage: FREQUENCY : EVERY THREE WEEKS;?FREQ: INFUSE 75 GM (750 ML) INTRAVENOUSLY EVERY 3 WEEKS VIA CURLIN PU
     Route: 042
     Dates: start: 20231221
  2. ACETAMINOPHEN EXTRA STREN [Concomitant]
  3. BD POSIFLUSH [Concomitant]
  4. DIPHENHYDRAMINE HYDROCHLORIDE [Concomitant]
     Active Substance: DIPHENHYDRAMINE HYDROCHLORIDE
  5. DIPHENHYDRAMINE HYDROCHLO [Concomitant]
  6. EPINEPHRINE [Concomitant]
     Active Substance: EPINEPHRINE
  7. GAMMAGARD LIQUID [Concomitant]
     Active Substance: HUMAN IMMUNOGLOBULIN G
  8. LIDOCAINE HYDROCHLORIDE [Concomitant]
     Active Substance: LIDOCAINE HYDROCHLORIDE
  9. MONOJECT PHARMA GRADE FLU [Concomitant]
  10. SODIUM CHLORIDE [Concomitant]
     Active Substance: SODIUM CHLORIDE
  11. NORMAL SALINE I.V. FLUSH [Concomitant]

REACTIONS (2)
  - Hospitalisation [None]
  - Therapy interrupted [None]
